FAERS Safety Report 4758123-3 (Version None)
Quarter: 2005Q3

REPORT INFORMATION
  Report Type: 
  Country: None (occurrence: None)
  Receive Date: 20050831
  Receipt Date: 20050311
  Transmission Date: 20060218
  Serious: Yes (Other)
  Sender: FDA-Public Use
  Company Number: US-MERCK-0503USA02640

PATIENT
  Age: 54 Year
  Sex: Female
  Weight: 51 kg

DRUGS (8)
  1. VIOXX [Suspect]
     Indication: MULTIPLE SCLEROSIS
     Route: 048
     Dates: start: 20010101, end: 20041001
  2. ULTRAM [Concomitant]
     Route: 065
  3. COPAXONE [Concomitant]
     Route: 065
  4. SYMMETREL [Concomitant]
     Route: 065
  5. ZANAFLEX [Concomitant]
     Route: 065
  6. NEURONTIN [Concomitant]
     Route: 065
  7. DETROL LA [Concomitant]
     Route: 065
  8. ELAVIL [Concomitant]
     Route: 065

REACTIONS (13)
  - ALOPECIA [None]
  - AMNESIA [None]
  - BUNDLE BRANCH BLOCK LEFT [None]
  - CARDIAC DISORDER [None]
  - CLOSED HEAD INJURY [None]
  - CONGESTIVE CARDIOMYOPATHY [None]
  - DIPLOPIA [None]
  - GOITRE [None]
  - INFLUENZA LIKE ILLNESS [None]
  - INTESTINAL RESECTION [None]
  - MYOCARDIAL INFARCTION [None]
  - ROAD TRAFFIC ACCIDENT [None]
  - THYROID NEOPLASM [None]
